FAERS Safety Report 8357266-5 (Version None)
Quarter: 2012Q2

REPORT INFORMATION
  Report Type: 
  Country: None (occurrence: None)
  Receive Date: 20120514
  Receipt Date: 20120509
  Transmission Date: 20120825
  Serious: Yes (Hospitalization, Other)
  Sender: FDA-Public Use
  Company Number: PHHY2012CA028119

PATIENT
  Sex: Female

DRUGS (4)
  1. CELEXA [Concomitant]
     Dosage: 10 MG, UNK
  2. THYROID STIMULATING IMMUNOGLOBULIN [Concomitant]
  3. GILENYA [Suspect]
     Indication: RELAPSING-REMITTING MULTIPLE SCLEROSIS
     Dosage: 0.5 MG, QD
     Route: 048
     Dates: start: 20120329
  4. GABAPENTIN [Concomitant]

REACTIONS (4)
  - BRADYCARDIA [None]
  - ATRIOVENTRICULAR BLOCK SECOND DEGREE [None]
  - ASTHENIA [None]
  - ELECTROCARDIOGRAM ST SEGMENT ABNORMAL [None]
